FAERS Safety Report 8250440-8 (Version None)
Quarter: 2012Q2

REPORT INFORMATION
  Report Type: 
  Country: None (occurrence: None)
  Receive Date: 20120402
  Receipt Date: 20120321
  Transmission Date: 20120825
  Serious: Yes (Hospitalization, Other)
  Sender: FDA-Public Use
  Company Number: US-BAYER-2012-022615

PATIENT
  Age: 67 Year
  Sex: Male
  Weight: 78.47 kg

DRUGS (5)
  1. XARELTO [Suspect]
     Indication: CEREBROVASCULAR ACCIDENT PROPHYLAXIS
  2. ASPIRIN [Suspect]
  3. NITROGLYCERIN [Concomitant]
  4. PLAVIX [Concomitant]
     Dosage: UNK
     Dates: end: 20120101
  5. XARELTO [Suspect]
     Indication: ATRIAL FIBRILLATION
     Dosage: 20 MG, UNK
     Route: 048
     Dates: start: 20120209, end: 20120226

REACTIONS (6)
  - ANGINA UNSTABLE [None]
  - TUMOUR HAEMORRHAGE [None]
  - ACUTE MYOCARDIAL INFARCTION [None]
  - HAEMOGLOBIN DECREASED [None]
  - OESOPHAGEAL ADENOCARCINOMA [None]
  - ANAEMIA OF MALIGNANT DISEASE [None]
